FAERS Safety Report 26135872 (Version 1)
Quarter: 2025Q4

REPORT INFORMATION
  Report Type: Spontaneous
  Country: US (occurrence: US)
  Receive Date: 20251209
  Receipt Date: 20251209
  Transmission Date: 20260118
  Serious: No
  Sender: BAYER HEALTHCARE PHARMACEUTICALS INC.
  Company Number: US-BAYER-2025A160987

PATIENT
  Age: 74 Year
  Sex: Female

DRUGS (2)
  1. CIPROFLOXACIN [Suspect]
     Active Substance: CIPROFLOXACIN
  2. IBRANCE [Concomitant]
     Active Substance: PALBOCICLIB
     Dosage: 125 MG

REACTIONS (1)
  - Drug hypersensitivity [None]
